FAERS Safety Report 7281274-9 (Version None)
Quarter: 2011Q1

REPORT INFORMATION
  Report Type: 
  Country: None (occurrence: None)
  Receive Date: 20110208
  Receipt Date: 20110131
  Transmission Date: 20110831
  Serious: Yes (Death)
  Sender: FDA-Public Use
  Company Number: CHPA2011US02064

PATIENT
  Age: 47 Year
  Sex: Female

DRUGS (8)
  1. ACETAMINOPHEN [Suspect]
     Dosage: UNK, UNK
     Route: 048
  2. OPIOIDS [Suspect]
     Dosage: UNK, UNK
     Route: 048
  3. ACETAMINOPHEN (PARACETAMOL),ACETYLSAL ACID,CAFFEINE CITRATE [Suspect]
     Dosage: UNK, UNK
     Route: 065
  4. ETHANOL [Suspect]
     Dosage: UNK, UNK
     Route: 048
  5. ETHANOL [Suspect]
     Dosage: UNK, UNK
     Route: 065
  6. ACETAMINOPHEN (PARACETAMOL),ACETYLSAL ACID,CAFFEINE CITRATE [Suspect]
     Dosage: UNK, UNK
     Route: 048
  7. ACETAMINOPHEN [Suspect]
     Dosage: UNK, UNK
     Route: 065
  8. OPIOIDS [Suspect]
     Dosage: UNK, UNK
     Route: 065

REACTIONS (1)
  - DEATH [None]
